FAERS Safety Report 5176941-7 (Version None)
Quarter: 2006Q4

REPORT INFORMATION
  Report Type: 
  Country: None (occurrence: None)
  Receive Date: 20061207
  Receipt Date: 20061101
  Transmission Date: 20070319
  Serious: Yes (Other)
  Sender: FDA-Public Use
  Company Number: 001#2#2006-00469

PATIENT
  Age: 79 Year
  Sex: Male

DRUGS (1)
  1. VIRIDAL-20UG (ALPROSTADIL (ED) ) [Suspect]
     Dosage: 20 MCG (20 MCG 1 IN 1 DAY(S)); INTRACAVERNOUS
     Route: 017
     Dates: start: 20061101, end: 20061101

REACTIONS (5)
  - ACCIDENTAL OVERDOSE [None]
  - CHILLS [None]
  - ERECTION INCREASED [None]
  - GENITAL ERYTHEMA [None]
  - PENIS DISORDER [None]
